FAERS Safety Report 4823456-9 (Version None)
Quarter: 2005Q4

REPORT INFORMATION
  Report Type: 
  Country: None (occurrence: None)
  Receive Date: 20051109
  Receipt Date: 20050819
  Transmission Date: 20060501
  Serious: Yes (Other)
  Sender: FDA-Public Use
  Company Number: FR-BRISTOL-MYERS SQUIBB COMPANY-13089594

PATIENT
  Age: 77 Year
  Sex: Male

DRUGS (4)
  1. VASTEN TABS [Suspect]
     Indication: PROPHYLAXIS
     Route: 048
     Dates: start: 20040101, end: 20050805
  2. AMAREL [Concomitant]
     Indication: DIABETES MELLITUS NON-INSULIN-DEPENDENT
     Route: 048
  3. ACTOS [Concomitant]
     Indication: DIABETES MELLITUS NON-INSULIN-DEPENDENT
  4. PLAVIX [Concomitant]
     Indication: ARTERIOPATHIC DISEASE

REACTIONS (5)
  - C-REACTIVE PROTEIN INCREASED [None]
  - INFLAMMATION [None]
  - POLYMYALGIA RHEUMATICA [None]
  - RED BLOOD CELL SEDIMENTATION RATE INCREASED [None]
  - WHITE BLOOD CELL COUNT INCREASED [None]
